FAERS Safety Report 4577378-1 (Version None)
Quarter: 2005Q1

REPORT INFORMATION
  Report Type: 
  Country: None (occurrence: None)
  Receive Date: 20050210
  Receipt Date: 20050131
  Transmission Date: 20050727
  Serious: Yes (Death)
  Sender: FDA-Public Use
  Company Number: 2005-124596-NL

PATIENT
  Age: 43 Year
  Sex: Female

DRUGS (11)
  1. RANITIDINE [Suspect]
     Indication: GASTRIC OPERATION
     Route: 042
     Dates: start: 20050104, end: 20050104
  2. VECURONIUM BROMIDE [Suspect]
     Indication: GASTRIC OPERATION
     Route: 042
     Dates: start: 20050104, end: 20050104
  3. PROPOFOL [Suspect]
     Indication: GASTRIC OPERATION
     Route: 042
     Dates: start: 20050104, end: 20050104
  4. FENTANYL CITRATE [Suspect]
     Indication: GASTRIC OPERATION
     Route: 042
     Dates: start: 20050104, end: 20050104
  5. DIAZEPAM [Suspect]
     Indication: GASTRIC OPERATION
     Route: 042
     Dates: start: 20050104, end: 20050104
  6. CEFAZOLIN SODIUM [Suspect]
     Indication: GASTRIC OPERATION
     Route: 042
     Dates: start: 20050104, end: 20050104
  7. DESFLURANE [Suspect]
     Indication: GASTRIC OPERATION
     Route: 055
     Dates: start: 20050104, end: 20050104
  8. METFORMIN HCL [Concomitant]
     Indication: DIABETES MELLITUS
     Route: 048
     Dates: end: 20050103
  9. GLIBENCLAMIDE [Concomitant]
     Indication: DIABETES MELLITUS
     Route: 048
     Dates: end: 20050103
  10. FRUSEMIDE [Concomitant]
     Indication: HYPERTENSION
     Route: 048
     Dates: end: 20050103
  11. CETIRIZINE HCL [Concomitant]
     Route: 048
     Dates: end: 20050103

REACTIONS (12)
  - ACIDOSIS [None]
  - ANURIA [None]
  - BLOOD PRESSURE SYSTOLIC INCREASED [None]
  - BODY TEMPERATURE INCREASED [None]
  - CARDIAC ARREST [None]
  - HAEMODYNAMIC INSTABILITY [None]
  - HYPERCALCAEMIA [None]
  - HYPERTENSION [None]
  - HYPERTHERMIA MALIGNANT [None]
  - POST PROCEDURAL COMPLICATION [None]
  - RESPIRATORY DISORDER [None]
  - TACHYCARDIA [None]
